FAERS Safety Report 10586182 (Version 1)
Quarter: 2014Q4

REPORT INFORMATION
  Report Type: Report from Study
  Country: NL (occurrence: NL)
  Receive Date: 20141116
  Receipt Date: 20141116
  Transmission Date: 20150529
  Serious: Yes (Hospitalization)
  Sender: FDA-Public Use
  Company Number: NL-AMGEN-NLDSL2012086770

PATIENT
  Age: 60 Year
  Sex: Female

DRUGS (1)
  1. NEULASTA [Suspect]
     Active Substance: PEGFILGRASTIM
     Indication: PRODUCT USED FOR UNKNOWN INDICATION
     Dosage: 6 MG, Q3WK
     Route: 065

REACTIONS (6)
  - Decreased appetite [Unknown]
  - Fatigue [Unknown]
  - Depressed mood [Unknown]
  - Nausea [Unknown]
  - Asthenia [Unknown]
  - Pneumonia [Unknown]
